FAERS Safety Report 16947872 (Version 1)
Quarter: 2019Q4

REPORT INFORMATION
  Report Type: Spontaneous
  Country: US (occurrence: US)
  Receive Date: 20191022
  Receipt Date: 20191022
  Transmission Date: 20200122
  Serious: No
  Sender: FDA-Public Use
  Company Number: US-ROCHE-2221735

PATIENT
  Sex: Male

DRUGS (1)
  1. ZELBORAF [Suspect]
     Active Substance: VEMURAFENIB
     Indication: COLON CANCER
     Dosage: 4 TABLETS (960 MG) TWICE A DAY
     Route: 048
     Dates: start: 20181030, end: 20181227

REACTIONS (3)
  - Nausea [Unknown]
  - Intentional product use issue [Unknown]
  - Off label use [Unknown]
